FAERS Safety Report 13406951 (Version 2)
Quarter: 2019Q4

REPORT INFORMATION
  Report Type: Spontaneous
  Country: US (occurrence: US)
  Receive Date: 20170405
  Receipt Date: 20191021
  Transmission Date: 20200122
  Serious: Yes (Other)
  Sender: FDA-Public Use
  Company Number: US-PFIZER INC-2017148961

PATIENT
  Age: 41 Year
  Sex: Male

DRUGS (18)
  1. PAROXETINE. [Concomitant]
     Active Substance: PAROXETINE
     Indication: ANTIDEPRESSANT THERAPY
     Dosage: UNK
     Dates: start: 2013
  2. ALPROSTADIL. [Concomitant]
     Active Substance: ALPROSTADIL
     Indication: ERECTILE DYSFUNCTION
  3. CARBOXYMETHYLCELLULOSE [Concomitant]
     Active Substance: CARBOXYMETHYLCELLULOSE
     Indication: DRY EYE
     Dosage: UNK
     Dates: start: 2013
  4. MUPIROCIN. [Concomitant]
     Active Substance: MUPIROCIN
     Indication: HYPERKERATOSIS
     Dosage: UNK
     Dates: start: 2013
  5. VIAGRA [Suspect]
     Active Substance: SILDENAFIL CITRATE
     Indication: ERECTILE DYSFUNCTION
     Dosage: UNK (3 SAMPLES RECEIVED)
     Dates: start: 2006
  6. ASPIRIN [ACETYLSALICYLIC ACID] [Concomitant]
     Active Substance: ASPIRIN
     Indication: PAIN
     Dosage: UNK
     Dates: start: 2013, end: 2018
  7. LOPERAMIDE HCL [Concomitant]
     Active Substance: LOPERAMIDE HYDROCHLORIDE
     Indication: GASTROINTESTINAL DISORDER
     Dosage: UNK
     Dates: start: 2013
  8. TAMSULOSIN [Concomitant]
     Active Substance: TAMSULOSIN
     Indication: HYPERKERATOSIS
     Dosage: UNK
     Dates: start: 2013
  9. PREGABALIN. [Concomitant]
     Active Substance: PREGABALIN
     Indication: PAIN
     Dosage: UNK
     Dates: start: 2013
  10. VIAGRA [Suspect]
     Active Substance: SILDENAFIL CITRATE
     Dosage: 50 MG, UNK (HALF OF 100 MG TABLET A COUPLE OF TIMES A WEEK)
     Route: 048
     Dates: start: 20011212, end: 20150319
  11. LIDOCAINE. [Concomitant]
     Active Substance: LIDOCAINE
     Indication: PAIN
     Dosage: UNK
     Dates: start: 2013
  12. ONDANSETRON HYDROCHLORIDE. [Concomitant]
     Active Substance: ONDANSETRON HYDROCHLORIDE
     Indication: NAUSEA
     Dosage: UNK
     Dates: start: 2013
  13. MELATONIN [Concomitant]
     Active Substance: MELATONIN
     Indication: SLEEP DISORDER
     Dosage: UNK
     Dates: start: 2013
  14. VARDENAFIL [Concomitant]
     Active Substance: VARDENAFIL HYDROCHLORIDE
     Indication: ERECTILE DYSFUNCTION
     Dosage: 20 MG, UNK (TWICE A MONTH)
     Dates: start: 20120628
  15. ALPROSTADIL. [Concomitant]
     Active Substance: ALPROSTADIL
     Indication: PAIN
     Dosage: 1000 UG, UNK
     Dates: start: 2013
  16. FLUTICASONE. [Concomitant]
     Active Substance: FLUTICASONE
     Indication: HYPERKERATOSIS
     Dosage: UNK
     Dates: start: 2013
  17. MUSE [Concomitant]
     Active Substance: ALPROSTADIL
     Indication: ERECTILE DYSFUNCTION
     Dosage: 1 MG, UNK (1-2 TIMES PER YEAR)
     Dates: start: 2013, end: 2015
  18. CLINDAMYCIN. [Concomitant]
     Active Substance: CLINDAMYCIN
     Indication: HYPERKERATOSIS
     Dosage: UNK
     Dates: start: 2013

REACTIONS (4)
  - Anxiety [Unknown]
  - Malignant melanoma [Unknown]
  - Depression [Unknown]
  - Post-traumatic stress disorder [Unknown]

NARRATIVE: CASE EVENT DATE: 20070730
